FAERS Safety Report 8585812-5 (Version None)
Quarter: 2012Q3

REPORT INFORMATION
  Report Type: 
  Country: None (occurrence: None)
  Receive Date: 20120810
  Receipt Date: 20120808
  Transmission Date: 20120928
  Serious: Yes (Hospitalization)
  Sender: FDA-Public Use
  Company Number: DE-ELI_LILLY_AND_COMPANY-DE201208002173

PATIENT
  Sex: Female

DRUGS (3)
  1. MAGNESIUM [Concomitant]
     Dosage: UNK, EACH EVENING
  2. FORTEO [Suspect]
     Indication: OSTEOPOROSIS
     Dosage: UNK, QD
     Route: 058
     Dates: start: 20110530
  3. CALCIUM [Concomitant]
     Dosage: UNK, EACH MORNING

REACTIONS (2)
  - MUSCLE SPASMS [None]
  - GAIT DISTURBANCE [None]
